FAERS Safety Report 12982214 (Version 17)
Quarter: 2017Q2

REPORT INFORMATION
  Report Type: Spontaneous
  Country: US (occurrence: US)
  Receive Date: 20161129
  Receipt Date: 20170526
  Transmission Date: 20170830
  Serious: Yes (Hospitalization, Other)
  Sender: FDA-Public Use
  Company Number: US-PFIZER INC-2016542971

PATIENT
  Age: 71 Year
  Sex: Male
  Weight: 72.56 kg

DRUGS (9)
  1. VITAMIN B COMPLEX [Concomitant]
     Active Substance: CYANOCOBALAMIN\DEXPANTHENOL\NIACINAMIDE\PYRIDOXINE HYDROCHLORIDE\RIBOFLAVIN 5^-PHOSPHATE SODIUM\THIAMINE HYDROCHLORIDE\VITAMIN B COMPLEX
     Dosage: UNK
  2. DIABION [Concomitant]
     Dosage: UNK
  3. COZAAR [Concomitant]
     Active Substance: LOSARTAN POTASSIUM
     Dosage: UNK
     Dates: start: 201701, end: 20170213
  4. CALCIUM [Concomitant]
     Active Substance: CALCIUM
     Dosage: UNK
  5. PROSCAR [Concomitant]
     Active Substance: FINASTERIDE
     Dosage: UNK
  6. PAROXETINE. [Concomitant]
     Active Substance: PAROXETINE
     Dosage: UNK
     Dates: start: 20170304
  7. TAMSULOSIN [Concomitant]
     Active Substance: TAMSULOSIN
     Dosage: 6.4 MG, UNK
     Dates: start: 20170405
  8. SUTENT [Suspect]
     Active Substance: SUNITINIB MALATE
     Indication: METASTATIC RENAL CELL CARCINOMA
     Dosage: 50 MG, CYCLIC (DAILY FOR 28 DAYS ON/14 DAYS OFF)
     Dates: start: 20161117, end: 20170225
  9. ALENDRONIC [Concomitant]
     Dosage: UNK, WEEKLY
     Dates: start: 20161020

REACTIONS (45)
  - Yellow skin [Recovered/Resolved]
  - Feeding disorder [Recovered/Resolved]
  - Pain [Recovered/Resolved]
  - Weight increased [Recovered/Resolved]
  - Hypertension [Recovered/Resolved]
  - Dizziness [Recovered/Resolved]
  - Chest pain [Recovered/Resolved]
  - Dysgeusia [Recovered/Resolved]
  - Weight decreased [Recovered/Resolved]
  - Headache [Recovered/Resolved]
  - Dyspnoea [Recovered/Resolved]
  - Chromaturia [Recovered/Resolved]
  - Decreased appetite [Recovered/Resolved]
  - Pallor [Recovered/Resolved]
  - Depression [Recovered/Resolved]
  - Fall [Recovered/Resolved]
  - Pancreatitis [Recovered/Resolved]
  - Hair colour changes [Recovered/Resolved]
  - Influenza like illness [Recovered/Resolved]
  - Insomnia [Recovered/Resolved]
  - Gait disturbance [Recovered/Resolved]
  - Infection [Recovered/Resolved]
  - Cholecystitis infective [Recovered/Resolved]
  - Bone pain [Recovered/Resolved]
  - Constipation [Recovered/Resolved]
  - Nightmare [Recovered/Resolved]
  - Procedural pain [Recovered/Resolved]
  - Oropharyngeal pain [Recovered/Resolved]
  - Pyrexia [Recovered/Resolved]
  - Back pain [Recovered/Resolved]
  - Diarrhoea [Recovered/Resolved]
  - Gastric disorder [Recovered/Resolved]
  - Malaise [Recovered/Resolved]
  - Hyperhidrosis [Recovered/Resolved]
  - Pancreatic enlargement [Unknown]
  - Abdominal pain upper [Recovered/Resolved]
  - Restlessness [Not Recovered/Not Resolved]
  - Anxiety [Recovered/Resolved]
  - Dehydration [Recovered/Resolved]
  - Chills [Recovered/Resolved]
  - Nausea [Recovered/Resolved]
  - Fatigue [Recovered/Resolved]
  - Asthenia [Recovered/Resolved]
  - Dyspepsia [Recovered/Resolved]
  - Cough [Recovered/Resolved]

NARRATIVE: CASE EVENT DATE: 201611
